FAERS Safety Report 12771822 (Version 1)
Quarter: 2016Q3

REPORT INFORMATION
  Report Type: Spontaneous
  Country: GB (occurrence: GB)
  Receive Date: 20160922
  Receipt Date: 20160922
  Transmission Date: 20161109
  Serious: Yes (Hospitalization, Other)
  Sender: FDA-Public Use
  Company Number: GB-SA-2016SA169878

PATIENT
  Age: 45 Year
  Sex: Female
  Weight: 57.3 kg

DRUGS (23)
  1. RIFAMPICIN [Suspect]
     Active Substance: RIFAMPIN
     Indication: WOUND INFECTION
     Route: 048
     Dates: start: 20160817, end: 20160824
  2. FLUCLOXACILLIN [Suspect]
     Active Substance: FLUCLOXACILLIN
     Indication: WOUND INFECTION
     Route: 042
     Dates: start: 20160817, end: 20160823
  3. FENTANYL. [Concomitant]
     Active Substance: FENTANYL
  4. DERMOL [Concomitant]
     Active Substance: BENZALKONIUM CHLORIDE\CHLORHEXIDINE HYDROCHLORIDE\ISOPROPYL MYRISTATE\PARAFFIN
  5. HYDROCORTISONE. [Concomitant]
     Active Substance: HYDROCORTISONE
  6. CYCLIZINE [Concomitant]
     Active Substance: CYCLIZINE
  7. GABAPENTIN. [Concomitant]
     Active Substance: GABAPENTIN
  8. LACRI-LUBE [Concomitant]
  9. ONDANSETRON [Concomitant]
     Active Substance: ONDANSETRON
  10. DOUBLEBASE [Concomitant]
     Active Substance: ISOPROPYL MYRISTATE\PARAFFIN
  11. ENOXAPARIN [Concomitant]
     Active Substance: ENOXAPARIN
  12. LEVETIRACETAM. [Concomitant]
     Active Substance: LEVETIRACETAM
  13. TINZAPARIN [Concomitant]
     Active Substance: TINZAPARIN
  14. VANCOMYCIN [Concomitant]
     Active Substance: VANCOMYCIN
  15. GAVISCON ADVANCE [Concomitant]
     Active Substance: POTASSIUM BICARBONATE\SODIUM ALGINATE
  16. PARACETAMOL [Concomitant]
     Active Substance: ACETAMINOPHEN
  17. TAZOCIN [Concomitant]
     Active Substance: PIPERACILLIN SODIUM\TAZOBACTAM SODIUM
  18. ALFENTANIL. [Concomitant]
     Active Substance: ALFENTANIL
  19. QUININE SULFATE. [Concomitant]
     Active Substance: QUININE SULFATE
  20. TEICOPLANIN [Concomitant]
     Active Substance: TEICOPLANIN
  21. MORPHINE SULFATE. [Concomitant]
     Active Substance: MORPHINE SULFATE
  22. PERMETHRIN. [Concomitant]
     Active Substance: PERMETHRIN
  23. OMEPRAZOLE. [Concomitant]
     Active Substance: OMEPRAZOLE

REACTIONS (1)
  - Acute kidney injury [Recovering/Resolving]

NARRATIVE: CASE EVENT DATE: 20160823
